FAERS Safety Report 7716806-7 (Version None)
Quarter: 2011Q3

REPORT INFORMATION
  Report Type: 
  Country: None (occurrence: None)
  Receive Date: 20110829
  Receipt Date: 20110829
  Transmission Date: 20111222
  Serious: Yes (Hospitalization, Other)
  Sender: FDA-Public Use
  Company Number: CA-ABBOTT-11P-028-0843765-00

PATIENT
  Sex: Female

DRUGS (8)
  1. LIPITOR [Concomitant]
     Indication: PRODUCT USED FOR UNKNOWN INDICATION
  2. RAMIPRIL [Concomitant]
     Indication: PRODUCT USED FOR UNKNOWN INDICATION
  3. METHOTREXATE [Concomitant]
     Indication: PRODUCT USED FOR UNKNOWN INDICATION
     Route: 050
  4. FOLIC ACID [Concomitant]
     Indication: PRODUCT USED FOR UNKNOWN INDICATION
  5. BISOPROLOL FUMARATE [Concomitant]
     Indication: PRODUCT USED FOR UNKNOWN INDICATION
  6. HUMIRA [Suspect]
     Indication: RHEUMATOID ARTHRITIS
     Route: 058
     Dates: start: 20110421
  7. RABEPRAZOLE SODIUM [Concomitant]
     Indication: PRODUCT USED FOR UNKNOWN INDICATION
  8. FERROUS GLUCONATE [Concomitant]
     Indication: PRODUCT USED FOR UNKNOWN INDICATION

REACTIONS (15)
  - CARDIAC FAILURE CONGESTIVE [None]
  - LEFT VENTRICULAR DYSFUNCTION [None]
  - NAUSEA [None]
  - SINUS RHYTHM [None]
  - VOMITING [None]
  - MYOCARDIAL INFARCTION [None]
  - ASTHENIA [None]
  - UROSEPSIS [None]
  - ELECTROCARDIOGRAM T WAVE INVERSION [None]
  - ANAEMIA [None]
  - DIZZINESS [None]
  - TROPONIN INCREASED [None]
  - LEFT ATRIAL DILATATION [None]
  - PYREXIA [None]
  - RESPIRATORY DISTRESS [None]
